FAERS Safety Report 6835235-1 (Version None)
Quarter: 2010Q3

REPORT INFORMATION
  Report Type: 
  Country: None (occurrence: None)
  Receive Date: 20100713
  Receipt Date: 20100706
  Transmission Date: 20110219
  Serious: Yes (Hospitalization)
  Sender: FDA-Public Use
  Company Number: JP-BAYER-JP-2006-014305

PATIENT
  Age: 58 Year
  Sex: Male

DRUGS (26)
  1. BETAFERON [Suspect]
     Indication: RELAPSING-REMITTING MULTIPLE SCLEROSIS
     Dosage: TOTAL DAILY DOSE: 4 MIU
     Route: 058
     Dates: start: 20040727, end: 20040731
  2. BETAFERON [Suspect]
     Dosage: TOTAL DAILY DOSE: 8 MIU
     Route: 058
     Dates: start: 20040802
  3. MYONAL [Concomitant]
     Indication: RELAPSING-REMITTING MULTIPLE SCLEROSIS
     Route: 048
     Dates: start: 20060313
  4. MYONAL [Concomitant]
     Route: 048
  5. LIORESAL ^NOVARTIS^ [Concomitant]
     Indication: RELAPSING-REMITTING MULTIPLE SCLEROSIS
     Route: 048
  6. AMITRIPTYLINE HCL [Concomitant]
     Indication: DEPRESSION
     Route: 048
  7. GASTER [Concomitant]
     Indication: GASTRIC ULCER
     Route: 048
  8. METHYCOBAL [Concomitant]
     Indication: RELAPSING-REMITTING MULTIPLE SCLEROSIS
     Route: 048
  9. MARZULENE S [Concomitant]
     Indication: GASTRIC ULCER
     Route: 048
  10. MAGNESIUM OXIDE [Concomitant]
     Indication: CONSTIPATION
     Route: 048
  11. DEPAS [Concomitant]
     Indication: DEPRESSION
     Route: 048
     Dates: start: 20070523
  12. DEPAS [Concomitant]
     Route: 048
     Dates: end: 20070522
  13. DEPAS [Concomitant]
     Route: 048
  14. SOLU-MEDROL [Concomitant]
     Indication: RELAPSING-REMITTING MULTIPLE SCLEROSIS
     Route: 042
     Dates: start: 20070301, end: 20070303
  15. SOLU-MEDROL [Concomitant]
     Route: 042
     Dates: start: 20070220, end: 20070222
  16. SOLU-MEDROL [Concomitant]
     Route: 042
     Dates: start: 20070209, end: 20070211
  17. SOLU-MEDROL [Concomitant]
     Route: 042
     Dates: start: 20041215, end: 20041217
  18. TEGRETOL [Concomitant]
     Indication: RELAPSING-REMITTING MULTIPLE SCLEROSIS
     Route: 048
     Dates: start: 20050118, end: 20050118
  19. TEGRETOL [Concomitant]
     Route: 048
     Dates: start: 20050401
  20. TEGRETOL [Concomitant]
     Route: 048
     Dates: start: 20050127, end: 20050201
  21. TEGRETOL [Concomitant]
     Route: 048
     Dates: start: 20050119, end: 20050126
  22. TEGRETOL [Concomitant]
     Route: 048
     Dates: start: 20050202, end: 20050222
  23. MEXITIL [Concomitant]
     Indication: RELAPSING-REMITTING MULTIPLE SCLEROSIS
     Route: 048
     Dates: start: 20050223, end: 20050331
  24. PAXIL [Concomitant]
     Indication: DEPRESSION
     Route: 048
     Dates: start: 20050316
  25. PAXIL [Concomitant]
     Route: 048
     Dates: start: 20050308, end: 20050315
  26. PAXIL [Concomitant]
     Route: 048
     Dates: start: 20050302, end: 20050307

REACTIONS (6)
  - CLAVICLE FRACTURE [None]
  - DEPRESSION [None]
  - HEPATIC STEATOSIS [None]
  - MULTIPLE SCLEROSIS RELAPSE [None]
  - NASOPHARYNGITIS [None]
  - SLEEP APNOEA SYNDROME [None]
